FAERS Safety Report 6012224-0 (Version None)
Quarter: 2008Q4

REPORT INFORMATION
  Report Type: 
  Country: None (occurrence: None)
  Receive Date: 20081216
  Receipt Date: 20080102
  Transmission Date: 20090506
  Serious: Yes (Other)
  Sender: FDA-Public Use
  Company Number: US-WYE-H01939608

PATIENT
  Age: 31 Year
  Sex: Female
  Weight: 81.72 kg

DRUGS (4)
  1. EFFEXOR XR [Suspect]
     Indication: DEPRESSION
     Dosage: 37.5 MG 1X PER 1 DAY, ORAL ; 150 MG 1X PER 1 DAY, ORAL ; 75  MG 1X PER 1 DAY, ORAL
     Route: 048
     Dates: start: 20070101, end: 20071001
  2. EFFEXOR XR [Suspect]
     Indication: DEPRESSION
     Dosage: 37.5 MG 1X PER 1 DAY, ORAL ; 150 MG 1X PER 1 DAY, ORAL ; 75  MG 1X PER 1 DAY, ORAL
     Route: 048
     Dates: start: 20071001, end: 20071207
  3. EFFEXOR XR [Suspect]
     Indication: DEPRESSION
     Dosage: 37.5 MG 1X PER 1 DAY, ORAL ; 150 MG 1X PER 1 DAY, ORAL ; 75  MG 1X PER 1 DAY, ORAL
     Route: 048
     Dates: start: 20071208, end: 20071211
  4. LISINOPRIL [Concomitant]

REACTIONS (1)
  - HEPATITIS [None]
